FAERS Safety Report 8220437-2 (Version None)
Quarter: 2012Q1

REPORT INFORMATION
  Report Type: 
  Country: None (occurrence: None)
  Receive Date: 20120319
  Receipt Date: 20120117
  Transmission Date: 20120608
  Serious: Yes (Other)
  Sender: FDA-Public Use
  Company Number: PHHY2012KR021027

PATIENT
  Sex: Male
  Weight: 76 kg

DRUGS (3)
  1. IMMUNOSUPPRESSANTS [Concomitant]
  2. EXJADE [Suspect]
     Indication: APLASTIC ANAEMIA
     Route: 048
  3. EXJADE [Suspect]
     Indication: IRON OVERLOAD

REACTIONS (2)
  - GENERAL PHYSICAL HEALTH DETERIORATION [None]
  - SERUM FERRITIN ABNORMAL [None]
